FAERS Safety Report 4315720-7 (Version None)
Quarter: 2004Q1

REPORT INFORMATION
  Report Type: 
  Country: None (occurrence: None)
  Receive Date: 20040303
  Receipt Date: 20030828
  Transmission Date: 20041129
  Serious: Yes (Hospitalization, Other)
  Sender: FDA-Public Use
  Company Number: 200323241BWH

PATIENT
  Age: 65 Year
  Sex: Male

DRUGS (9)
  1. TRASYLOL [Suspect]
     Dosage: ONCE, INTRAVENOUS
     Route: 042
     Dates: start: 20030612
  2. NORVASC [Concomitant]
  3. ASPIRIN [Concomitant]
  4. COLACE [Concomitant]
  5. LASIX [Concomitant]
  6. METOPROLOL [Concomitant]
  7. PROTONIX [Concomitant]
  8. KCL TAB [Concomitant]
  9. CAPTOPRIL [Concomitant]

REACTIONS (4)
  - DEEP VEIN THROMBOSIS [None]
  - HYPOAESTHESIA [None]
  - PAIN IN EXTREMITY [None]
  - PLANTAR FASCIITIS [None]
